FAERS Safety Report 11141632 (Version 1)
Quarter: 2015Q2

REPORT INFORMATION
  Report Type: Spontaneous
  Country: CN (occurrence: CN)
  Receive Date: 20150527
  Receipt Date: 20150527
  Transmission Date: 20150821
  Serious: Yes (Hospitalization, Other)
  Sender: FDA-Public Use
  Company Number: CN-MYLANLABS-2015M1017341

PATIENT

DRUGS (4)
  1. BLEOMYCIN [Suspect]
     Active Substance: BLEOMYCIN SULFATE
     Indication: BLADDER CANCER
     Dosage: 30MG ON DAYS 1, 8 AND 15 OF EVERY 21-DAY CYCLE
     Route: 042
     Dates: start: 201204, end: 201205
  2. KETAMINE [Suspect]
     Active Substance: KETAMINE
     Dosage: 8-10 TABLETS PER DAY
     Route: 065
     Dates: start: 2000
  3. CARBOPLATIN. [Suspect]
     Active Substance: CARBOPLATIN
     Indication: BLADDER CANCER
     Dosage: AUC 5 MG/ML/MIN ON DAY 1 OF EVERY 21-DAY CYCLE
     Route: 042
     Dates: start: 201204, end: 201205
  4. ETOPOSIDE. [Suspect]
     Active Substance: ETOPOSIDE
     Indication: BLADDER CANCER
     Dosage: 100 MG/M2 ON DAYS 1-5 OF EVERY 21-DAY CYCLE
     Route: 042
     Dates: start: 201204, end: 201205

REACTIONS (7)
  - Appendicitis [Unknown]
  - Drug abuse [Recovered/Resolved]
  - Mucosal inflammation [Unknown]
  - Neutropenic sepsis [Unknown]
  - Abdominal abscess [Unknown]
  - Bladder disorder [Unknown]
  - Cystitis [Unknown]

NARRATIVE: CASE EVENT DATE: 2000
